FAERS Safety Report 8325711 (Version 3)
Quarter: 2013Q4

REPORT INFORMATION
  Report Type: Spontaneous
  Country: IE (occurrence: IE)
  Receive Date: 20120106
  Receipt Date: 20131106
  Transmission Date: 20140711
  Serious: Yes (Hospitalization, Disabling, Other)
  Sender: FDA-Public Use
  Company Number: IE-009507513-1201GBR00008

PATIENT
  Age: 88 Year
  Sex: Female

DRUGS (1)
  1. FOSAVANCE [Suspect]
     Indication: OSTEOPOROSIS
     Dosage: 70MG/2800
     Route: 048
     Dates: start: 200503, end: 201202

REACTIONS (1)
  - Femur fracture [Unknown]
